FAERS Safety Report 23924689 (Version 2)
Quarter: 2024Q2

REPORT INFORMATION
  Report Type: Spontaneous
  Country: PT (occurrence: PT)
  Receive Date: 20240531
  Receipt Date: 20240604
  Transmission Date: 20240715
  Serious: Yes (Other)
  Sender: FDA-Public Use
  Company Number: PT-SA-2024SA147719

PATIENT
  Age: 70 Year
  Sex: Female

DRUGS (2)
  1. AMIODARONE [Suspect]
     Active Substance: AMIODARONE
     Indication: Atrial fibrillation
     Dosage: UNK
     Route: 065
  2. BISOPROLOL [Concomitant]
     Active Substance: BISOPROLOL\BISOPROLOL FUMARATE
     Indication: Product used for unknown indication
     Dosage: UNK
     Route: 065

REACTIONS (8)
  - Thyroiditis [Recovering/Resolving]
  - Malaise [Recovering/Resolving]
  - Periorbital oedema [Recovering/Resolving]
  - Headache [Recovering/Resolving]
  - Generalised oedema [Recovering/Resolving]
  - Myxoedema [Recovering/Resolving]
  - Oedema peripheral [Recovering/Resolving]
  - Hypothyroidism [Recovering/Resolving]
